FAERS Safety Report 5674962-9 (Version None)
Quarter: 2008Q2

REPORT INFORMATION
  Report Type: 
  Country: None (occurrence: None)
  Receive Date: 20080303
  Receipt Date: 20070420
  Transmission Date: 20081010
  Serious: Yes (Life-Threatening, Hospitalization)
  Sender: FDA-Public Use
  Company Number: RB-6028-2007

PATIENT
  Age: 16 Month
  Sex: Male
  Weight: 10 kg

DRUGS (2)
  1. SUBOXONE [Suspect]
     Indication: DRUG USE FOR UNKNOWN INDICATION
     Dosage: 4 MG ACCIDENTAL INGESTION BY AN INFANT. BUCCAL
     Route: 002
  2. NALOXONE [Concomitant]

REACTIONS (7)
  - ACCIDENTAL EXPOSURE [None]
  - LETHARGY [None]
  - MIOSIS [None]
  - OXYGEN SATURATION DECREASED [None]
  - RESPIRATORY DEPRESSION [None]
  - RESPIRATORY RATE DECREASED [None]
  - SOMNOLENCE [None]
